FAERS Safety Report 6125441-6 (Version None)
Quarter: 2009Q1

REPORT INFORMATION
  Report Type: 
  Country: None (occurrence: None)
  Receive Date: 20090320
  Receipt Date: 20090310
  Transmission Date: 20090719
  Serious: Yes (Hospitalization)
  Sender: FDA-Public Use
  Company Number: US-BIOGENIDEC-2009BI004483

PATIENT
  Age: 48 Year
  Sex: Male

DRUGS (13)
  1. TYSABRI [Suspect]
     Indication: MULTIPLE SCLEROSIS
     Route: 042
     Dates: start: 20071009
  2. VITAMIN B-12 [Concomitant]
     Indication: DRUG USE FOR UNKNOWN INDICATION
  3. ACUPRIN [Concomitant]
     Indication: DRUG USE FOR UNKNOWN INDICATION
  4. CLARINEX [Concomitant]
     Indication: DRUG USE FOR UNKNOWN INDICATION
  5. METOCLOPRAMIDE HYDROCHLORIDE [Concomitant]
     Indication: DRUG USE FOR UNKNOWN INDICATION
  6. CYTOTEC [Concomitant]
     Indication: DRUG USE FOR UNKNOWN INDICATION
  7. MODAFINIL [Concomitant]
     Indication: DRUG USE FOR UNKNOWN INDICATION
  8. GABAPENTIN [Concomitant]
     Indication: DRUG USE FOR UNKNOWN INDICATION
  9. GLYCOLAX [Concomitant]
     Indication: DRUG USE FOR UNKNOWN INDICATION
  10. NASACORT [Concomitant]
     Indication: DRUG USE FOR UNKNOWN INDICATION
  11. ALBUTEROL [Concomitant]
     Indication: DRUG USE FOR UNKNOWN INDICATION
  12. LYSINE [Concomitant]
     Indication: DRUG USE FOR UNKNOWN INDICATION
  13. LUNESTA [Concomitant]
     Indication: DRUG USE FOR UNKNOWN INDICATION

REACTIONS (8)
  - BODY TEMPERATURE INCREASED [None]
  - CATHETER SITE INFECTION [None]
  - CYSTITIS KLEBSIELLA [None]
  - NAUSEA [None]
  - PNEUMONIA [None]
  - STAPHYLOCOCCAL INFECTION [None]
  - URINARY TRACT INFECTION PSEUDOMONAL [None]
  - VOMITING [None]
